FAERS Safety Report 8162743-6 (Version None)
Quarter: 2012Q1

REPORT INFORMATION
  Report Type: 
  Country: None (occurrence: None)
  Receive Date: 20120224
  Receipt Date: 20120214
  Transmission Date: 20120608
  Serious: Yes (Other)
  Sender: FDA-Public Use
  Company Number: DE-ABBOTT-12P-062-0906157-00

PATIENT
  Age: 48 Year
  Sex: Male

DRUGS (2)
  1. CALCIUM [Concomitant]
     Indication: PRODUCT USED FOR UNKNOWN INDICATION
     Route: 065
  2. LUPRON [Suspect]
     Indication: PARAPHILIA
     Route: 058

REACTIONS (2)
  - OFF LABEL USE [None]
  - INTERVERTEBRAL DISC PROTRUSION [None]
